FAERS Safety Report 8569068-5 (Version None)
Quarter: 2012Q3

REPORT INFORMATION
  Report Type: 
  Country: None (occurrence: None)
  Receive Date: 20120803
  Receipt Date: 20120214
  Transmission Date: 20120928
  Serious: No
  Sender: FDA-Public Use
  Company Number: US-ABBOTT-12P-163-0904358-00

PATIENT
  Sex: Male
  Weight: 88.53 kg

DRUGS (6)
  1. COREG [Concomitant]
     Indication: PRODUCT USED FOR UNKNOWN INDICATION
  2. FOLIC ACID [Concomitant]
     Indication: PRODUCT USED FOR UNKNOWN INDICATION
  3. LOVAZZA [Concomitant]
     Indication: PRODUCT USED FOR UNKNOWN INDICATION
  4. FISH OIL [Concomitant]
     Indication: PRODUCT USED FOR UNKNOWN INDICATION
  5. NIASPAN [Suspect]
     Indication: MYOCARDIAL INFARCTION
     Dosage: 1 IN 1 D, AT BEDTIME
     Dates: start: 20040101
  6. ASPIRIN [Concomitant]
     Indication: PRODUCT USED FOR UNKNOWN INDICATION

REACTIONS (1)
  - FLUSHING [None]
